FAERS Safety Report 9718778 (Version 2)
Quarter: 2013Q4

REPORT INFORMATION
  Report Type: Spontaneous
  Country: US (occurrence: None)
  Receive Date: 20131125
  Receipt Date: 20131211
  Transmission Date: 20140711
  Serious: Yes (Other)
  Sender: FDA-Public Use
  Company Number: BR13-413-AE

PATIENT
  Sex: Male

DRUGS (2)
  1. OXY / APAP [Suspect]
     Indication: PAIN
     Dosage: UNKNOWN THERAPY DATES
     Route: 048
  2. OXY / APAP [Suspect]
     Indication: SURGERY
     Dosage: UNKNOWN THERAPY DATES
     Route: 048

REACTIONS (4)
  - Drug ineffective [None]
  - Tinnitus [None]
  - Hyperhidrosis [None]
  - Poisoning [None]
